FAERS Safety Report 8933264 (Version 3)
Quarter: 2012Q4

REPORT INFORMATION
  Report Type: 
  Country: US (occurrence: US)
  Receive Date: 20121129
  Receipt Date: 20121231
  Transmission Date: 20130627
  Serious: Yes (Hospitalization)
  Sender: FDA-Public Use
  Company Number: PHEH2012US023156

PATIENT
  Age: 55 Year
  Sex: Male
  Weight: 118 kg

DRUGS (1)
  1. GILENYA [Suspect]
     Indication: MULTIPLE SCLEROSIS
     Dosage: 0.5 mg, QD
     Route: 048
     Dates: start: 20111107, end: 20121121

REACTIONS (9)
  - Congestive cardiomyopathy [Recovering/Resolving]
  - Dyspnoea [Recovering/Resolving]
  - Oedema peripheral [Recovering/Resolving]
  - Systolic dysfunction [Recovering/Resolving]
  - Mitral valve incompetence [Recovering/Resolving]
  - Diastolic dysfunction [Recovering/Resolving]
  - Ejection fraction decreased [Recovering/Resolving]
  - Weight increased [Unknown]
  - Electrocardiogram abnormal [Unknown]
